FAERS Safety Report 13540769 (Version 1)
Quarter: 2017Q2

REPORT INFORMATION
  Report Type: Spontaneous
  Country: US (occurrence: US)
  Receive Date: 20170512
  Receipt Date: 20170512
  Transmission Date: 20170830
  Serious: Yes (Other)
  Sender: FDA-Public Use
  Company Number: US-LPDUSPRD-20170571

PATIENT
  Sex: Male

DRUGS (1)
  1. INJECTAFER [Suspect]
     Active Substance: FERRIC CARBOXYMALTOSE
     Dosage: DOSE UNKOWN
     Route: 040

REACTIONS (6)
  - Fall [Unknown]
  - Head injury [Unknown]
  - Nausea [Unknown]
  - Skin irritation [Unknown]
  - Unevaluable event [Unknown]
  - Dizziness [Unknown]
